FAERS Safety Report 10192631 (Version 1)
Quarter: 2014Q2

REPORT INFORMATION
  Report Type: Spontaneous
  Country: US (occurrence: US)
  Receive Date: 20140523
  Receipt Date: 20140523
  Transmission Date: 20141212
  Serious: Yes (Other)
  Sender: FDA-Public Use
  Company Number: US-ELI_LILLY_AND_COMPANY-US201405004738

PATIENT
  Age: 37 Year
  Sex: Female
  Weight: 92.97 kg

DRUGS (1)
  1. HUMALOG LISPRO [Suspect]
     Indication: PRODUCT USED FOR UNKNOWN INDICATION
     Route: 058

REACTIONS (4)
  - Diabetic ketoacidosis [Unknown]
  - Coma [Unknown]
  - Decreased appetite [Unknown]
  - Weight decreased [Unknown]
